FAERS Safety Report 8565964-3 (Version None)
Quarter: 2012Q3

REPORT INFORMATION
  Report Type: 
  Country: None (occurrence: None)
  Receive Date: 20120803
  Receipt Date: 20110818
  Transmission Date: 20120928
  Serious: No
  Sender: FDA-Public Use
  Company Number: US-ABBOTT-11P-163-0848295-00

PATIENT
  Sex: Male
  Weight: 89.438 kg

DRUGS (13)
  1. ASPIRIN [Concomitant]
     Indication: CARDIAC DISORDER
  2. LORTAB [Concomitant]
     Indication: BACK PAIN
  3. VYTORIN [Concomitant]
     Indication: BLOOD CHOLESTEROL INCREASED
  4. TORSEMIDE [Concomitant]
     Indication: FLUID RETENTION
  5. PLAVIX [Concomitant]
     Indication: ATRIOVENTRICULAR BLOCK
  6. COQ10 [Concomitant]
     Indication: MUSCLE SPASMS
  7. NIASPAN [Suspect]
     Indication: BLOOD CHOLESTEROL INCREASED
     Dosage: AT BEDTIME
     Route: 048
     Dates: start: 20110816, end: 20110818
  8. AVAPRO [Concomitant]
     Indication: BLOOD CHOLESTEROL INCREASED
  9. DIGOXIN [Concomitant]
     Indication: ARRHYTHMIA
  10. POTASSIUM CHLORIDE [Concomitant]
     Indication: BLOOD TRIGLYCERIDES
  11. VITAMIN B-12 [Concomitant]
     Indication: SUPPLEMENTATION THERAPY
  12. MULTIPLE VITAMINS [Concomitant]
     Indication: SUPPLEMENTATION THERAPY
  13. NORVASC [Concomitant]
     Indication: BLOOD PRESSURE

REACTIONS (4)
  - LOSS OF CONSCIOUSNESS [None]
  - FLUSHING [None]
  - ASTHENIA [None]
  - FEELING HOT [None]
